FAERS Safety Report 15390660 (Version 1)
Quarter: 2018Q3

REPORT INFORMATION
  Report Type: Spontaneous
  Country: US (occurrence: US)
  Receive Date: 20180909
  Receipt Date: 20180909
  Transmission Date: 20181010
  Serious: No
  Sender: FDA-Public Use
  Company Number: None

PATIENT
  Age: 32 Year
  Sex: Female

DRUGS (2)
  1. SAFECARE ASTHMACARE ORAL SPRAY 2 OZ [Suspect]
     Active Substance: HOMEOPATHICS
     Indication: WHEEZING
     Dosage: ?          QUANTITY:2 OUNCE(S);?
     Route: 048
     Dates: start: 20180508, end: 20180708
  2. SAFECARE ASTHMACARE ORAL SPRAY 2 OZ [Suspect]
     Active Substance: HOMEOPATHICS
     Indication: COUGH
     Dosage: ?          QUANTITY:2 OUNCE(S);?
     Route: 048
     Dates: start: 20180508, end: 20180708

REACTIONS (1)
  - Treatment failure [None]
